FAERS Safety Report 17439556 (Version 1)
Quarter: 2020Q1

REPORT INFORMATION
  Report Type: Report from Study
  Country: US (occurrence: US)
  Receive Date: 20200220
  Receipt Date: 20200220
  Transmission Date: 20200409
  Serious: Yes (Other)
  Sender: FDA-Public Use
  Company Number: US-ROCHE-2387192

PATIENT
  Sex: Female

DRUGS (3)
  1. RITUXAN [Suspect]
     Active Substance: RITUXIMAB
     Indication: IMMUNOLOGY TEST ABNORMAL
     Dosage: INFUSE 585 MILLI GRAMS INTRAVENOUSLY EACH WEEK
     Route: 041
  2. RITUXAN [Suspect]
     Active Substance: RITUXIMAB
     Indication: ARTERIAL DISORDER
     Route: 041
  3. RITUXAN [Suspect]
     Active Substance: RITUXIMAB
     Indication: NEPHRITIC SYNDROME
     Dosage: INFUSE 585 MILLI GRAMS INTRAVENOUSLY EACH WEEK
     Route: 041

REACTIONS (5)
  - Acute kidney injury [Unknown]
  - Intentional product use issue [Unknown]
  - Glomerulonephritis [Unknown]
  - Off label use [Unknown]
  - Hyponatraemia [Unknown]
